FAERS Safety Report 5274466-1 (Version None)
Quarter: 2007Q1

REPORT INFORMATION
  Report Type: 
  Country: None (occurrence: None)
  Receive Date: 20070323
  Receipt Date: 20070312
  Transmission Date: 20070707
  Serious: Yes (Other)
  Sender: FDA-Public Use
  Company Number: US-PFIZER INC-2007019702

PATIENT
  Sex: Female
  Weight: 88.5 kg

DRUGS (2)
  1. CHANTIX [Suspect]
     Indication: SMOKING CESSATION THERAPY
     Route: 048
  2. ANACIN [Concomitant]

REACTIONS (4)
  - BLOOD PRESSURE INCREASED [None]
  - DIPLOPIA [None]
  - FATIGUE [None]
  - FEELING HOT AND COLD [None]
